FAERS Safety Report 18496579 (Version 1)
Quarter: 2020Q4

REPORT INFORMATION
  Report Type: Spontaneous
  Country: US (occurrence: US)
  Receive Date: 20201112
  Receipt Date: 20201112
  Transmission Date: 20210114
  Serious: No
  Sender: FDA-Public Use
  Company Number: None

PATIENT
  Age: 90 Year
  Sex: Female
  Weight: 78.6 kg

DRUGS (1)
  1. REMDESIVIR LYOPHILIZED POWDER [Suspect]
     Active Substance: REMDESIVIR
     Indication: COVID-19
     Route: 042
     Dates: start: 20201109, end: 20201111

REACTIONS (1)
  - Aspartate aminotransferase increased [None]

NARRATIVE: CASE EVENT DATE: 20201111
